FAERS Safety Report 5848349-X (Version None)
Quarter: 2008Q3

REPORT INFORMATION
  Report Type: 
  Country: None (occurrence: None)
  Receive Date: 20080814
  Receipt Date: 20080814
  Transmission Date: 20090109
  Serious: Yes (Hospitalization)
  Sender: FDA-Public Use
  Company Number: None

PATIENT
  Age: 39 Year
  Sex: Female
  Weight: 70 kg

DRUGS (3)
  1. VISIPAQUE 320 [Suspect]
     Indication: SCAN
     Dosage: 320 MG -96 ML-  1 TIME IV
     Route: 042
     Dates: start: 20080111, end: 20080111
  2. MIRALAX(R) [Concomitant]
  3. MILK OF MAGNESIA(R) [Concomitant]

REACTIONS (4)
  - DISORIENTATION [None]
  - DYSARTHRIA [None]
  - SNEEZING [None]
  - VISION BLURRED [None]
